FAERS Safety Report 15867770 (Version 1)
Quarter: 2019Q1

REPORT INFORMATION
  Report Type: Spontaneous
  Country: SK (occurrence: SK)
  Receive Date: 20190125
  Receipt Date: 20190125
  Transmission Date: 20190417
  Serious: Yes (Other)
  Sender: FDA-Public Use
  Company Number: SK-MYLANLABS-2019M1006257

PATIENT
  Age: 33 Year
  Sex: Male

DRUGS (4)
  1. MELPHALAN. [Suspect]
     Active Substance: MELPHALAN
     Indication: HODGKIN^S DISEASE
     Dosage: UNK UNK, UNKNOWN FREQ.
     Route: 065
     Dates: start: 201509
  2. LEVACT [Suspect]
     Active Substance: BENDAMUSTINE HYDROCHLORIDE
     Indication: HODGKIN^S DISEASE
     Dosage: UNK UNK, CYCLE
     Route: 058
     Dates: start: 201509
  3. ETOPOSIDE. [Suspect]
     Active Substance: ETOPOSIDE
     Indication: HODGKIN^S DISEASE
     Dosage: UNK UNK, UNKNOWN FREQ.
     Route: 065
     Dates: start: 201509
  4. CYTARABINE. [Suspect]
     Active Substance: CYTARABINE
     Indication: HODGKIN^S DISEASE
     Dosage: UNK UNK, UNKNOWN FREQ.
     Route: 065
     Dates: start: 201509

REACTIONS (4)
  - Nephropathy [Unknown]
  - Renal failure [Unknown]
  - Incorrect route of product administration [Unknown]
  - Off label use [Unknown]

NARRATIVE: CASE EVENT DATE: 201509
